FAERS Safety Report 4988271-4 (Version None)
Quarter: 2006Q2

REPORT INFORMATION
  Report Type: 
  Country: None (occurrence: None)
  Receive Date: 20060425
  Receipt Date: 20060414
  Transmission Date: 20061013
  Serious: Yes (Other)
  Sender: FDA-Public Use
  Company Number: 2006S1000077

PATIENT
  Age: 40 Year
  Sex: Male
  Weight: 165.3 kg

DRUGS (2)
  1. ACITRETIN [Suspect]
     Indication: PSORIASIS
     Dosage: 30 MG; QD; PO
     Route: 048
  2. TIGASON (ETRETINATE) [Suspect]
     Indication: PSORIASIS
     Dosage: PO
     Route: 048
     Dates: start: 19830101

REACTIONS (2)
  - BASEDOW'S DISEASE [None]
  - EXOPHTHALMOS [None]
